FAERS Safety Report 7727770-9 (Version None)
Quarter: 2011Q3

REPORT INFORMATION
  Report Type: 
  Country: None (occurrence: None)
  Receive Date: 20110902
  Receipt Date: 20110827
  Transmission Date: 20111222
  Serious: Yes (Other)
  Sender: FDA-Public Use
  Company Number: DE-AMGEN-DEUSP2011024478

PATIENT
  Age: 52 Year
  Sex: Female
  Weight: 84 kg

DRUGS (7)
  1. ELTROMBOPAG [Concomitant]
  2. NPLATE [Suspect]
     Dosage: 250 MUG, QWK
     Dates: start: 20110101
  3. IMMUNOGLOBULINS [Concomitant]
  4. NPLATE [Suspect]
     Indication: IDIOPATHIC THROMBOCYTOPENIC PURPURA
     Dosage: 1 MUG/KG, QWK
     Route: 058
     Dates: start: 20090701
  5. NPLATE [Suspect]
     Dosage: 750 MUG, QWK
     Dates: end: 20110329
  6. DEXAMETHASONE [Concomitant]
     Dosage: 40 MG, UNK
     Route: 048
     Dates: start: 19950101, end: 20110301
  7. NPLATE [Suspect]
     Dosage: 10 MUG/KG, QWK
     Route: 058
     Dates: end: 20100601

REACTIONS (7)
  - THROMBOCYTOSIS [None]
  - PETECHIAE [None]
  - HAEMORRHAGE [None]
  - MEGAKARYOCYTES INCREASED [None]
  - THERAPEUTIC RESPONSE DECREASED [None]
  - THROMBOCYTOPENIA [None]
  - HAEMORRHAGIC DIATHESIS [None]
